FAERS Safety Report 23747482 (Version 1)
Quarter: 2024Q2

REPORT INFORMATION
  Report Type: Spontaneous
  Country: US (occurrence: None)
  Receive Date: 20240415
  Receipt Date: 20240415
  Transmission Date: 20240716
  Serious: No
  Sender: FDA-Public Use
  Company Number: None

PATIENT
  Age: 48 Year
  Sex: Female
  Weight: 99.45 kg

DRUGS (3)
  1. MOUNJARO [Suspect]
     Active Substance: TIRZEPATIDE
     Indication: Metabolic syndrome
     Dosage: OTHER FREQUENCY : WEEKLY;?
     Route: 058
     Dates: start: 20230605, end: 20240219
  2. VICTOZA [Suspect]
     Active Substance: LIRAGLUTIDE
  3. EFFEXOR [Concomitant]
     Active Substance: VENLAFAXINE HYDROCHLORIDE

REACTIONS (15)
  - Hypertransaminasaemia [None]
  - Rash [None]
  - Pyrexia [None]
  - Mental status changes [None]
  - Therapy interrupted [None]
  - Tremor [None]
  - Muscle twitching [None]
  - Vomiting [None]
  - Anxiety [None]
  - Paranoia [None]
  - Suicidal ideation [None]
  - Anger [None]
  - Depression [None]
  - Panic attack [None]
  - Nausea [None]

NARRATIVE: CASE EVENT DATE: 20231127
